FAERS Safety Report 6114917-3 (Version None)
Quarter: 2009Q1

REPORT INFORMATION
  Report Type: 
  Country: None (occurrence: None)
  Receive Date: 20090313
  Receipt Date: 20090310
  Transmission Date: 20090719
  Serious: Yes (Death, Hospitalization)
  Sender: FDA-Public Use
  Company Number: PHHY2009BG08654

PATIENT
  Sex: Male
  Weight: 35 kg

DRUGS (1)
  1. TOBI [Suspect]
     Indication: CYSTIC FIBROSIS
     Dosage: 300 MG, BID
     Dates: start: 20070501

REACTIONS (6)
  - COMA [None]
  - CONDITION AGGRAVATED [None]
  - LUNG INJURY [None]
  - ROAD TRAFFIC ACCIDENT [None]
  - SPLENECTOMY [None]
  - SPLENIC RUPTURE [None]
